FAERS Safety Report 21527252 (Version 1)
Quarter: 2022Q4

REPORT INFORMATION
  Report Type: Report from Study
  Country: US (occurrence: None)
  Receive Date: 20221031
  Receipt Date: 20221031
  Transmission Date: 20230113
  Serious: Yes (Death, Hospitalization)
  Sender: FDA-Public Use
  Company Number: US-ROCHE-2805830

PATIENT
  Age: 80 Year
  Sex: Female

DRUGS (25)
  1. VENETOCLAX [Suspect]
     Active Substance: VENETOCLAX
     Indication: B-cell lymphoma refractory
     Dosage: AT VARYING DOSES OF 200-800MG (BASED UPON ASSIGNED DOSE LEVEL) UPTO 6 CYCLES
     Route: 048
     Dates: start: 20210202, end: 20210401
  2. VENETOCLAX [Suspect]
     Active Substance: VENETOCLAX
     Indication: Mantle cell lymphoma
  3. OBINUTUZUMAB [Suspect]
     Active Substance: OBINUTUZUMAB
     Indication: B-cell lymphoma refractory
     Dosage: FOR UP TO 6 CYCLES
     Route: 042
     Dates: start: 20210111, end: 20210320
  4. OBINUTUZUMAB [Suspect]
     Active Substance: OBINUTUZUMAB
     Indication: Mantle cell lymphoma
  5. IBRUTINIB [Suspect]
     Active Substance: IBRUTINIB
     Indication: B-cell lymphoma refractory
     Dosage: FOR UP TO 6 CYCLES
     Route: 048
     Dates: start: 20210111, end: 20210401
  6. IBRUTINIB [Suspect]
     Active Substance: IBRUTINIB
     Indication: Mantle cell lymphoma
  7. PREDNISONE [Suspect]
     Active Substance: PREDNISONE
     Indication: B-cell lymphoma refractory
     Dosage: FOR UP TO 6 CYCLES
     Route: 048
     Dates: start: 20210111, end: 20210325
  8. PREDNISONE [Suspect]
     Active Substance: PREDNISONE
     Indication: Mantle cell lymphoma
  9. LENALIDOMIDE [Suspect]
     Active Substance: LENALIDOMIDE
     Indication: B-cell lymphoma refractory
     Dosage: FOR UP TO 6 CYCLES
     Route: 048
     Dates: start: 20210202, end: 20210401
  10. LENALIDOMIDE [Suspect]
     Active Substance: LENALIDOMIDE
     Indication: Mantle cell lymphoma
  11. ALLOPURINOL [Concomitant]
     Active Substance: ALLOPURINOL
  12. VENTOLIN [Concomitant]
     Active Substance: ALBUTEROL SULFATE
  13. ALVESCO [Concomitant]
     Active Substance: CICLESONIDE
  14. VERAPAMIL [Concomitant]
     Active Substance: VERAPAMIL HYDROCHLORIDE
  15. ASPIRIN [Concomitant]
     Active Substance: ASPIRIN
  16. ATORVASTATIN [Concomitant]
     Active Substance: ATORVASTATIN
  17. PANTOPRAZOLE [Concomitant]
     Active Substance: PANTOPRAZOLE
  18. FOLIC ACID [Concomitant]
     Active Substance: FOLIC ACID
  19. HYDROCHLOROTHIAZIDE [Concomitant]
     Active Substance: HYDROCHLOROTHIAZIDE
  20. ARIMIDEX [Concomitant]
     Active Substance: ANASTROZOLE
  21. BACTRIM [Concomitant]
     Active Substance: SULFAMETHOXAZOLE\TRIMETHOPRIM
     Dosage: 800 MG/160 MG PO MWF
     Route: 048
  22. NIFEDIPINE [Concomitant]
     Active Substance: NIFEDIPINE
     Route: 048
  23. LEVETIRACETAM [Concomitant]
     Active Substance: LEVETIRACETAM
     Route: 048
  24. CLONIDINE [Concomitant]
     Active Substance: CLONIDINE
  25. LOPERAMIDE [Concomitant]
     Active Substance: LOPERAMIDE
     Route: 048

REACTIONS (3)
  - Pneumonia [Unknown]
  - Urinary tract infection [Unknown]
  - COVID-19 [Fatal]

NARRATIVE: CASE EVENT DATE: 20210404
